FAERS Safety Report 24937967 (Version 1)
Quarter: 2025Q1

REPORT INFORMATION
  Report Type: Spontaneous
  Country: US (occurrence: None)
  Receive Date: 20250206
  Receipt Date: 20250206
  Transmission Date: 20250409
  Serious: Yes (unspecified)
  Sender: FDA-CTU
  Company Number: None

PATIENT
  Age: 81 Year
  Sex: Male

DRUGS (2)
  1. SIMVASTATIN [Suspect]
     Active Substance: SIMVASTATIN
  2. GEMFIBROZIL [Suspect]
     Active Substance: GEMFIBROZIL

REACTIONS (2)
  - Drug interaction [None]
  - Rhabdomyolysis [None]
